FAERS Safety Report 8924553 (Version 1)
Quarter: 2012Q4

REPORT INFORMATION
  Report Type: 
  Country: US (occurrence: US)
  Receive Date: 20121126
  Receipt Date: 20121126
  Transmission Date: 20130627
  Serious: Yes (Other)
  Sender: FDA-Public Use
  Company Number: US-ASTRAZENECA-2012SE65598

PATIENT
  Age: 78 Year
  Sex: Female
  Weight: 72.6 kg

DRUGS (7)
  1. NEXIUM [Suspect]
     Route: 048
  2. NEXIUM IV [Suspect]
     Route: 042
     Dates: start: 2006
  3. VITAMIN D3 [Concomitant]
     Dosage: 1000 UNIT
  4. LIPITOR [Concomitant]
     Route: 048
  5. ASPIR -81 [Concomitant]
     Route: 048
  6. TRIMETHOPRIM [Concomitant]
     Route: 048
  7. COREG [Concomitant]
     Route: 048

REACTIONS (13)
  - Coronary artery occlusion [Unknown]
  - Myocardial infarction [Unknown]
  - Atrioventricular block first degree [Unknown]
  - Coronary artery restenosis [Unknown]
  - Mitral valve incompetence [Unknown]
  - Tricuspid valve incompetence [Unknown]
  - Ventricular dysfunction [Unknown]
  - Aortic valve stenosis [Unknown]
  - Mitral valve calcification [Unknown]
  - Glomerular filtration rate decreased [Unknown]
  - Bradycardia [Unknown]
  - Hyperlipidaemia [Unknown]
  - Obesity [Unknown]
